FAERS Safety Report 24604836 (Version 5)
Quarter: 2025Q4

REPORT INFORMATION
  Report Type: Report from Study
  Country: BR (occurrence: BR)
  Receive Date: 20241111
  Receipt Date: 20251114
  Transmission Date: 20260118
  Serious: Yes (Other)
  Sender: TAKEDA
  Company Number: BR-TAKEDA-2024TUS111778

PATIENT
  Age: 6 Year
  Sex: Male

DRUGS (8)
  1. HUMAN IMMUNOGLOBULIN G\HYALURONIDASE RECOMBINANT HUMAN [Suspect]
     Active Substance: HUMAN IMMUNOGLOBULIN G\HYALURONIDASE (HUMAN RECOMBINANT)
     Indication: Primary immunodeficiency syndrome
     Dosage: UNK UNK, Q5WEEKS
  2. HUMAN IMMUNOGLOBULIN G\HYALURONIDASE RECOMBINANT HUMAN [Suspect]
     Active Substance: HUMAN IMMUNOGLOBULIN G\HYALURONIDASE (HUMAN RECOMBINANT)
     Dosage: 10 GRAM, Q4WEEKS
  3. KIOVIG [Suspect]
     Active Substance: HUMAN IMMUNOGLOBULIN G
     Indication: Blood immunoglobulin G
     Dosage: UNK
  4. TRILEPTAL [Concomitant]
     Active Substance: OXCARBAZEPINE
     Indication: Seizure
     Dosage: UNK
  5. CANNABIDIOL\HERBALS [Concomitant]
     Active Substance: CANNABIDIOL\HERBALS
     Indication: Seizure
     Dosage: UNK
  6. DEPAKENE [Concomitant]
     Active Substance: VALPROIC ACID
     Indication: Seizure
     Dosage: UNK
  7. LEVOMEPROMAZINE [Concomitant]
     Active Substance: LEVOMEPROMAZINE
     Indication: Seizure
     Dosage: UNK
  8. RISPERIDONE [Concomitant]
     Active Substance: RISPERIDONE
     Indication: Seizure
     Dosage: UNK

REACTIONS (8)
  - Infection [Not Recovered/Not Resolved]
  - Hypogammaglobulinaemia [Unknown]
  - Inappropriate schedule of product administration [Unknown]
  - Incorrect dose administered [Unknown]
  - Poor venous access [Unknown]
  - Product use issue [Unknown]
  - Gait inability [Unknown]
  - Aphasia [Unknown]

NARRATIVE: CASE EVENT DATE: 20220108
